FAERS Safety Report 7244848-7 (Version None)
Quarter: 2011Q1

REPORT INFORMATION
  Report Type: 
  Country: None (occurrence: None)
  Receive Date: 20110126
  Receipt Date: 20110124
  Transmission Date: 20110831
  Serious: No
  Sender: FDA-Public Use
  Company Number: US-PFIZER INC-2011016858

PATIENT
  Sex: Female
  Weight: 48.073 kg

DRUGS (1)
  1. ADVIL [Suspect]
     Indication: MIGRAINE
     Dosage: UNK
     Route: 048

REACTIONS (1)
  - ABDOMINAL PAIN UPPER [None]
